FAERS Safety Report 6678314-4 (Version None)
Quarter: 2010Q2

REPORT INFORMATION
  Report Type: 
  Country: None (occurrence: None)
  Receive Date: 20100413
  Receipt Date: 20100402
  Transmission Date: 20101027
  Serious: Yes (Hospitalization)
  Sender: FDA-Public Use
  Company Number: US-BIOGENIDEC-2010BI004109

PATIENT
  Age: 47 Year
  Sex: Female

DRUGS (1)
  1. TYSABRI [Suspect]
     Indication: MULTIPLE SCLEROSIS
     Route: 042
     Dates: start: 20071029

REACTIONS (6)
  - ABASIA [None]
  - ASTHENIA [None]
  - BLADDER CATHETERISATION [None]
  - CYSTITIS [None]
  - HYSTERECTOMY [None]
  - MOBILITY DECREASED [None]
